FAERS Safety Report 9046266 (Version 1)
Quarter: 2013Q1

REPORT INFORMATION
  Report Type: Spontaneous
  Country: US (occurrence: None)
  Receive Date: 20130128
  Receipt Date: 20130128
  Transmission Date: 20140127
  Serious: No
  Sender: FDA-Public Use
  Company Number: None

PATIENT
  Age: 65 Year
  Sex: Male
  Weight: 111.4 kg

DRUGS (1)
  1. DABIGATRAN [Suspect]
     Indication: ATRIAL FIBRILLATION
     Dosage: 1 TAB  BID  PO?08/16/2012  THRU  ~10/17/2012
     Route: 048
     Dates: start: 20120816, end: 20121017

REACTIONS (3)
  - Haematochezia [None]
  - Rectal haemorrhage [None]
  - Melaena [None]
